FAERS Safety Report 19218470 (Version 2)
Quarter: 2021Q2

REPORT INFORMATION
  Report Type: Spontaneous
  Country: TH (occurrence: TH)
  Receive Date: 20210505
  Receipt Date: 20210513
  Transmission Date: 20210717
  Serious: Yes (Death, Hospitalization)
  Sender: FDA-Public Use
  Company Number: TH-MYLANLABS-2021M1025970

PATIENT

DRUGS (1)
  1. FULPHILA [Suspect]
     Active Substance: PEGFILGRASTIM-JMDB
     Indication: PRODUCT USED FOR UNKNOWN INDICATION
     Dosage: UNK (CYCLE 7 OF CHEMOTHERAPY.)
     Dates: start: 20210325

REACTIONS (3)
  - Drug ineffective [Unknown]
  - Fatigue [Unknown]
  - White blood cell count decreased [Fatal]

NARRATIVE: CASE EVENT DATE: 20210408
